FAERS Safety Report 8477486 (Version 4)
Quarter: 2012Q4

REPORT INFORMATION
  Report Type: Report from Study
  Country: US (occurrence: US)
  Receive Date: 20120327
  Receipt Date: 20121213
  Transmission Date: 20130627
  Serious: Yes (Hospitalization)
  Sender: FDA-Public Use
  Company Number: US-ASTELLAS-2012US002290

PATIENT
  Age: 2 Year
  Sex: Female
  Weight: 12 kg

DRUGS (17)
  1. TACROLIMUS OINTMENT [Suspect]
     Indication: DERMATITIS ATOPIC
     Dosage: 0.03 %, bid
     Route: 061
     Dates: start: 20100110
  2. TACROLIMUS OINTMENT [Suspect]
     Dosage: 0.1 %, bid
     Route: 061
  3. MOTRIN [Concomitant]
     Indication: CONTUSION
     Dosage: 200 mg, Q6 hours
     Route: 048
     Dates: start: 20111021
  4. CEPHALEXIN [Concomitant]
     Indication: PHARYNGITIS
     Dosage: 1 DF, Q12 hours
     Route: 065
     Dates: start: 20110919
  5. CLEMASTINE FUMARATE [Concomitant]
     Indication: PHARYNGITIS
     Dosage: 0.5 DF, bid
     Route: 065
     Dates: start: 20110919
  6. XOPENEX [Concomitant]
     Indication: PRODUCT USED FOR UNKNOWN INDICATION
     Dosage: 3 ml, tid
     Route: 055
  7. NIZORAL [Concomitant]
     Indication: PRODUCT USED FOR UNKNOWN INDICATION
     Dosage: 2 %, Unknown/D
     Route: 050
  8. TEMOVATE [Concomitant]
     Indication: PRODUCT USED FOR UNKNOWN INDICATION
     Dosage: 0.05 %, Unknown/D
     Route: 061
  9. CERAVE [Concomitant]
     Indication: PRODUCT USED FOR UNKNOWN INDICATION
     Dosage: 1 DF, Unknown/D
     Route: 061
  10. TYLENOL [Concomitant]
     Indication: PRODUCT USED FOR UNKNOWN INDICATION
     Dosage: 160 mg/5 ml, Unknown/D
     Route: 048
  11. BIAXIN [Concomitant]
     Indication: PRODUCT USED FOR UNKNOWN INDICATION
     Dosage: 250 mg, Unknown/D
     Route: 048
  12. RIFAMPIN [Concomitant]
     Indication: PRODUCT USED FOR UNKNOWN INDICATION
     Dosage: UNK
     Route: 065
  13. PEDIATEX TD [Concomitant]
     Indication: PRODUCT USED FOR UNKNOWN INDICATION
     Dosage: 1 DF, Q6 hours
     Route: 048
  14. ISONIAZID [Concomitant]
     Indication: PRODUCT USED FOR UNKNOWN INDICATION
     Dosage: 300 mg, UID/QD
     Route: 048
  15. NYSTATIN W/TRIAMCINOLONE [Concomitant]
     Indication: DERMATITIS DIAPER
     Dosage: 1 DF, bid
     Route: 061
  16. NASONEX [Concomitant]
     Indication: PRODUCT USED FOR UNKNOWN INDICATION
     Dosage: 2 DF, UID/QD
     Route: 055
  17. ZYRTEC [Concomitant]
     Indication: PRODUCT USED FOR UNKNOWN INDICATION
     Dosage: 5 mg, UID/QD
     Route: 048

REACTIONS (2)
  - Off label use [Unknown]
  - Lymphadenitis [Recovered/Resolved with Sequelae]
